FAERS Safety Report 9929379 (Version 2)
Quarter: 2014Q1

REPORT INFORMATION
  Report Type: Report from Study
  Country: SG (occurrence: SG)
  Receive Date: 20140227
  Receipt Date: 20140312
  Transmission Date: 20141002
  Serious: Yes (Other)
  Sender: FDA-Public Use
  Company Number: PHHY2014SG021781

PATIENT
  Age: 44 Year
  Sex: Male

DRUGS (2)
  1. GLIVEC [Suspect]
     Indication: CHRONIC MYELOID LEUKAEMIA
     Dosage: 400 MG, DAILY
     Dates: start: 20030623
  2. LAMIVUDINE [Concomitant]
     Indication: VIRAL HEPATITIS CARRIER
     Dosage: UNK UKN, UNK

REACTIONS (6)
  - Diabetes mellitus [Not Recovered/Not Resolved]
  - Odontogenic cyst [Not Recovered/Not Resolved]
  - Swelling face [Not Recovered/Not Resolved]
  - Neuralgia [Not Recovered/Not Resolved]
  - Fall [Unknown]
  - Ligament sprain [Unknown]
